FAERS Safety Report 5786213-5 (Version None)
Quarter: 2008Q2

REPORT INFORMATION
  Report Type: 
  Country: None (occurrence: None)
  Receive Date: 20080624
  Receipt Date: 20071030
  Transmission Date: 20081010
  Serious: No
  Sender: FDA-Public Use
  Company Number: US-ASTRAZENECA-2007UW17168

PATIENT
  Age: 2079 Day
  Sex: Male
  Weight: 33.2 kg

DRUGS (5)
  1. PULMICORT FLEXHALER [Suspect]
     Indication: ASTHMA
     Route: 055
     Dates: start: 20070617, end: 20070719
  2. SINGULAIR [Concomitant]
     Indication: CONJUNCTIVITIS ALLERGIC
  3. FLONASE [Concomitant]
  4. ZYRTEC [Concomitant]
     Indication: CONJUNCTIVITIS ALLERGIC
  5. PRILOSEC OTC [Concomitant]
     Indication: GASTROOESOPHAGEAL REFLUX DISEASE
     Route: 048

REACTIONS (1)
  - ORAL DISCOMFORT [None]
